FAERS Safety Report 10144146 (Version 1)
Quarter: 2014Q2

REPORT INFORMATION
  Report Type: Spontaneous
  Country: GB (occurrence: GB)
  Receive Date: 20140430
  Receipt Date: 20140430
  Transmission Date: 20141212
  Serious: Yes (Hospitalization)
  Sender: FDA-Public Use
  Company Number: GB-ASTRAZENECA-2014SE27767

PATIENT
  Age: 83 Year
  Sex: 0

DRUGS (14)
  1. LISINOPRIL [Suspect]
     Indication: HYPERTENSION
     Route: 048
     Dates: start: 20140320, end: 20140408
  2. ALFACALCIDOL [Concomitant]
  3. ALLOPURINOL [Concomitant]
  4. AMLODIPINE [Concomitant]
  5. CETIRIZINE [Concomitant]
  6. CODEINE [Concomitant]
  7. DOXAZOSIN [Concomitant]
  8. FERROUS SULPHATE [Concomitant]
  9. NOVO NORDISK A/S HUMAN INSULATARD [Concomitant]
     Dosage: 40IU/ML - 5 X10ML V
  10. NOVORAPID [Concomitant]
  11. OXYBUTYNIN [Concomitant]
  12. PARACETAMOL [Concomitant]
  13. SALBUTAMOL [Concomitant]
  14. SODIUM BICARBONATE [Concomitant]

REACTIONS (3)
  - Acidosis [Unknown]
  - Electrocardiogram T wave peaked [Unknown]
  - Hyperkalaemia [Recovered/Resolved]
